FAERS Safety Report 16894873 (Version 1)
Quarter: 2019Q4

REPORT INFORMATION
  Report Type: Spontaneous
  Country: US (occurrence: US)
  Receive Date: 20191007
  Receipt Date: 20191007
  Transmission Date: 20200122
  Serious: Yes (Hospitalization)
  Sender: FDA-Public Use
  Company Number: None

PATIENT
  Sex: Female

DRUGS (16)
  1. GABAPENTIN. [Concomitant]
     Active Substance: GABAPENTIN
  2. SUPER B-50 [Concomitant]
  3. GLATIRAMER [Suspect]
     Active Substance: GLATIRAMER
     Indication: MULTIPLE SCLEROSIS
     Dosage: ?          OTHER FREQUENCY:3 TIMES PER WEEK;?
     Route: 058
     Dates: start: 20190117
  4. ATORVASTATIN [Concomitant]
     Active Substance: ATORVASTATIN
  5. KLOR-CON [Concomitant]
     Active Substance: POTASSIUM CHLORIDE
  6. MELATONIN [Concomitant]
     Active Substance: MELATONIN
  7. ZINC. [Concomitant]
     Active Substance: ZINC
  8. IRON [Concomitant]
     Active Substance: IRON
  9. MAGNESIUM [Concomitant]
     Active Substance: MAGNESIUM
  10. VITAMIN D3 [Concomitant]
     Active Substance: CHOLECALCIFEROL
  11. ZONISAMIDE. [Concomitant]
     Active Substance: ZONISAMIDE
  12. ESCITALOPRAM [Concomitant]
     Active Substance: ESCITALOPRAM OXALATE
  13. PRIMIDONE. [Concomitant]
     Active Substance: PRIMIDONE
  14. XARELTO [Concomitant]
     Active Substance: RIVAROXABAN
  15. BACLOFEN. [Concomitant]
     Active Substance: BACLOFEN
  16. OXYBUTYNIN. [Concomitant]
     Active Substance: OXYBUTYNIN CHLORIDE

REACTIONS (4)
  - Clostridium difficile infection [None]
  - Amnesia [None]
  - Blood potassium decreased [None]
  - Fatigue [None]
